FAERS Safety Report 20329327 (Version 1)
Quarter: 2022Q1

REPORT INFORMATION
  Report Type: Spontaneous
  Country: US (occurrence: US)
  Receive Date: 20220112
  Receipt Date: 20220112
  Transmission Date: 20220423
  Serious: Yes (Other)
  Sender: FDA-Public Use
  Company Number: US-MYLANLABS-2022M1002299

PATIENT
  Age: 4 Year
  Sex: Female

DRUGS (5)
  1. TACROLIMUS [Suspect]
     Active Substance: TACROLIMUS
     Indication: Graft versus host disease
     Dosage: UNK
     Route: 065
  2. SIROLIMUS [Suspect]
     Active Substance: SIROLIMUS
     Indication: Graft versus host disease
     Dosage: UNK
     Route: 065
  3. IBRUTINIB [Suspect]
     Active Substance: IBRUTINIB
     Indication: Graft versus host disease
     Dosage: 140 MILLIGRAM, QD (INITIATED ON DAY 490)
     Route: 065
  4. IBRUTINIB [Suspect]
     Active Substance: IBRUTINIB
     Dosage: UNK, DOSE DECREASED
     Route: 065
  5. RUXOLITINIB [Concomitant]
     Active Substance: RUXOLITINIB
     Indication: Graft versus host disease
     Dosage: 2.5 MILLIGRAM, BID
     Route: 065

REACTIONS (1)
  - Drug ineffective [Unknown]
